FAERS Safety Report 5954135-2 (Version None)
Quarter: 2008Q4

REPORT INFORMATION
  Report Type: 
  Country: None (occurrence: None)
  Receive Date: 20081117
  Receipt Date: 20081114
  Transmission Date: 20090506
  Serious: Yes (Death)
  Sender: FDA-Public Use
  Company Number: AU-JNJFOC-20081103518

PATIENT
  Age: 38 Year
  Sex: Male

DRUGS (1)
  1. DURAGESIC-100 [Suspect]
     Indication: DRUG DIVERSION
     Dosage: 3 FENTANYL PATCHES
     Route: 062

REACTIONS (2)
  - DEATH [None]
  - DRUG DIVERSION [None]
